FAERS Safety Report 8430009-2 (Version None)
Quarter: 2012Q2

REPORT INFORMATION
  Report Type: 
  Country: None (occurrence: None)
  Receive Date: 20120612
  Receipt Date: 20120601
  Transmission Date: 20120825
  Serious: Yes (Other)
  Sender: FDA-Public Use
  Company Number: US-ROCHE-1045505

PATIENT
  Sex: Male

DRUGS (1)
  1. ZELBORAF [Suspect]
     Indication: MALIGNANT MELANOMA
     Dosage: DOSAGE: 960

REACTIONS (10)
  - DISEASE PROGRESSION [None]
  - HEADACHE [None]
  - DECREASED APPETITE [None]
  - DRY SKIN [None]
  - ACNE [None]
  - DRUG EFFECT DECREASED [None]
  - SUNBURN [None]
  - BLISTER [None]
  - VISUAL IMPAIRMENT [None]
  - DIARRHOEA [None]
